FAERS Safety Report 4345803-7 (Version None)
Quarter: 2004Q2

REPORT INFORMATION
  Report Type: 
  Country: None (occurrence: None)
  Receive Date: 20040421
  Receipt Date: 20040409
  Transmission Date: 20050107
  Serious: Yes (Death, Other)
  Sender: FDA-Public Use
  Company Number: GB-JNJFOC-20040102647

PATIENT
  Age: 56 Year
  Sex: Female

DRUGS (3)
  1. DOXORUBICIN HCL [Suspect]
     Indication: OVARIAN CANCER
     Dosage: 45 MG, INTRAVENOUS
     Route: 042
     Dates: start: 20031204, end: 20031204
  2. CARBOPLATIN [Suspect]
     Indication: OVARIAN CANCER
     Dosage: 261 MG, INTRAVENOUS
     Route: 042
     Dates: start: 20031204, end: 20031229
  3. PACLITAXEL [Suspect]
     Indication: OVARIAN CANCER
     Dosage: 460 MG, INTRAVENOUS
     Route: 042
     Dates: start: 20031204, end: 20031229

REACTIONS (7)
  - ASCITES [None]
  - CARDIAC ARREST [None]
  - CARDIAC FAILURE [None]
  - CIRCULATORY COLLAPSE [None]
  - DILATATION VENTRICULAR [None]
  - MALIGNANT NEOPLASM PROGRESSION [None]
  - PLEURAL EFFUSION [None]
